FAERS Safety Report 21719382 (Version 2)
Quarter: 2023Q1

REPORT INFORMATION
  Report Type: Spontaneous
  Country: US (occurrence: US)
  Receive Date: 20221213
  Receipt Date: 20230221
  Transmission Date: 20230418
  Serious: Yes (Hospitalization, Other)
  Sender: FDA-Public Use
  Company Number: US-002147023-NVSC2022US286909

PATIENT
  Age: 52 Year
  Sex: Female

DRUGS (1)
  1. KESIMPTA [Suspect]
     Active Substance: OFATUMUMAB
     Indication: Multiple sclerosis
     Dosage: 20 MG, QMO
     Route: 058
     Dates: start: 20220110

REACTIONS (3)
  - Extradural abscess [Recovering/Resolving]
  - Decreased immune responsiveness [Unknown]
  - Bacterial abscess central nervous system [Unknown]

NARRATIVE: CASE EVENT DATE: 20221005
